FAERS Safety Report 8047128-5 (Version None)
Quarter: 2012Q1

REPORT INFORMATION
  Report Type: 
  Country: None (occurrence: None)
  Receive Date: 20120116
  Receipt Date: 20120109
  Transmission Date: 20120608
  Serious: No
  Sender: FDA-Public Use
  Company Number: US-JNJFOC-20120103213

PATIENT
  Age: 30 Year
  Sex: Female

DRUGS (6)
  1. HYDROXYZINE [Concomitant]
     Route: 048
  2. INVEGA SUSTENNA [Suspect]
     Indication: BIPOLAR DISORDER
     Route: 030
     Dates: start: 20110119
  3. TOPAMAX [Concomitant]
     Indication: AFFECTIVE DISORDER
     Route: 048
  4. TOPAMAX [Concomitant]
     Indication: ALCOHOLISM
     Route: 048
  5. ZOLPIDEM [Concomitant]
     Route: 048
  6. CLONAZEPAM [Concomitant]
     Route: 048

REACTIONS (4)
  - MOOD SWINGS [None]
  - IRRITABILITY [None]
  - INSOMNIA [None]
  - TACHYPHRENIA [None]
